FAERS Safety Report 15545514 (Version 3)
Quarter: 2019Q1

REPORT INFORMATION
  Report Type: Spontaneous
  Country: GB (occurrence: GB)
  Receive Date: 20181024
  Receipt Date: 20190102
  Transmission Date: 20190417
  Serious: Yes (Life-Threatening, Hospitalization, Disabling, Other)
  Sender: FDA-Public Use
  Company Number: GB-AUROBINDO-AUR-APL-2018-050740

PATIENT
  Age: 61 Year
  Sex: Male
  Weight: 84 kg

DRUGS (4)
  1. NAPROXEN TABLET [Suspect]
     Active Substance: NAPROXEN
     Indication: PAIN IN EXTREMITY
     Dosage: 250 MILLIGRAM
     Route: 048
     Dates: start: 20180429, end: 20180506
  2. CLARITHROMYCIN. [Concomitant]
     Active Substance: CLARITHROMYCIN
     Indication: PRODUCT USED FOR UNKNOWN INDICATION
     Dosage: UNK
     Route: 065
  3. LEVOTHYROXINE SODIUM. [Concomitant]
     Active Substance: LEVOTHYROXINE SODIUM
     Indication: AUTOIMMUNE THYROID DISORDER
     Dosage: UNK
     Route: 065
  4. AMOXICILLIN. [Concomitant]
     Active Substance: AMOXICILLIN
     Indication: PRODUCT USED FOR UNKNOWN INDICATION
     Dosage: UNK
     Route: 065

REACTIONS (17)
  - Confusional state [Unknown]
  - Renal pain [Unknown]
  - Fatigue [Unknown]
  - Malaise [Unknown]
  - Acute kidney injury [Unknown]
  - Nausea [Unknown]
  - Dizziness [Unknown]
  - Asthenia [Unknown]
  - Respiratory tract irritation [Unknown]
  - Pyrexia [Unknown]
  - Chills [Unknown]
  - Peripheral coldness [Unknown]
  - Headache [Unknown]
  - Tinnitus [Unknown]
  - Meningitis [Not Recovered/Not Resolved]
  - Pain in extremity [Unknown]
  - Eye pain [Unknown]

NARRATIVE: CASE EVENT DATE: 20180506
